FAERS Safety Report 7879868-2 (Version None)
Quarter: 2011Q4

REPORT INFORMATION
  Report Type: 
  Country: None (occurrence: None)
  Receive Date: 20111101
  Receipt Date: 20110928
  Transmission Date: 20120403
  Serious: Yes (Other)
  Sender: FDA-Public Use
  Company Number: FI-UCBSA-044413

PATIENT
  Age: 33 Year
  Sex: Female

DRUGS (1)
  1. METHYLPHENIDATE HCL [Suspect]
     Route: 048
     Dates: start: 20100101, end: 20110101

REACTIONS (1)
  - HYPERTENSION [None]
